FAERS Safety Report 13497774 (Version 2)
Quarter: 2017Q2

REPORT INFORMATION
  Report Type: Report from Study
  Country: US (occurrence: IN)
  Receive Date: 20170428
  Receipt Date: 20170510
  Transmission Date: 20170830
  Serious: Yes (Death, Hospitalization)
  Sender: FDA-Public Use
  Company Number: US-SUNOVION-2017SUN001789

PATIENT
  Age: 67 Year
  Sex: Male

DRUGS (1)
  1. INDACATEROL AND GLYCOPYRROLATE [Suspect]
     Active Substance: GLYCOPYRROLATE\INDACATEROL MALEATE
     Indication: CHRONIC OBSTRUCTIVE PULMONARY DISEASE
     Dosage: 1 DF (50 UG OF GLYCOPYRONNIUM BROMIDE AND 110 UG OF INDACATEROL), UNK
     Route: 055
     Dates: start: 20160720, end: 20170414

REACTIONS (3)
  - Cardiac failure [Fatal]
  - Sepsis [Fatal]
  - Renal failure [Fatal]

NARRATIVE: CASE EVENT DATE: 20170414
